FAERS Safety Report 8958596 (Version 1)
Quarter: 2012Q4

REPORT INFORMATION
  Report Type: Spontaneous
  Country: US (occurrence: None)
  Receive Date: 20121205
  Receipt Date: 20121205
  Transmission Date: 20130627
  Serious: No
  Sender: FDA-Public Use
  Company Number: None

PATIENT
  Age: 62 Year
  Sex: Female
  Weight: 79.38 kg

DRUGS (1)
  1. CRESTOR [Suspect]
     Indication: HIGH CHOLESTEROL
     Dosage: 5 mg  1X day
over past yr.

REACTIONS (4)
  - Oedema peripheral [None]
  - Gait disturbance [None]
  - Pain [None]
  - Muscle tightness [None]
